FAERS Safety Report 4945984-8 (Version None)
Quarter: 2006Q1

REPORT INFORMATION
  Report Type: 
  Country: None (occurrence: None)
  Receive Date: 20060316
  Receipt Date: 20051109
  Transmission Date: 20060701
  Serious: Yes (Hospitalization, Disabling, Other)
  Sender: FDA-Public Use
  Company Number: US-MERCK-0511USA01573

PATIENT
  Sex: Male

DRUGS (4)
  1. VIOXX [Suspect]
     Route: 048
     Dates: start: 20020215
  2. ZANTAC [Concomitant]
     Route: 065
  3. LOTREL [Concomitant]
     Route: 065
  4. REMICADE [Concomitant]
     Route: 065

REACTIONS (8)
  - ARTHRITIS [None]
  - CARDIAC DISORDER [None]
  - COCCIDIOIDOMYCOSIS [None]
  - LEUKOPENIA [None]
  - MYOCARDIAL INFARCTION [None]
  - ONYCHOMYCOSIS [None]
  - PNEUMONITIS [None]
  - THROMBOCYTOPENIA [None]
